FAERS Safety Report 6736329-1 (Version None)
Quarter: 2010Q2

REPORT INFORMATION
  Report Type: 
  Country: None (occurrence: None)
  Receive Date: 20100521
  Receipt Date: 20100506
  Transmission Date: 20101027
  Serious: No
  Sender: FDA-Public Use
  Company Number: US-BAYER-201017075NA

PATIENT
  Age: 35 Year
  Sex: Female
  Weight: 51 kg

DRUGS (4)
  1. MAGNEVIST [Suspect]
     Indication: NUCLEAR MAGNETIC RESONANCE IMAGING ABDOMINAL
     Dosage: TOTAL DAILY DOSE: 10 ML  UNIT DOSE: 15 ML
     Route: 042
     Dates: start: 20100310, end: 20100310
  2. TOPROL-XL [Concomitant]
  3. LOVENOX [Concomitant]
  4. AMILORIDE HYDROCHLORIDE [Concomitant]

REACTIONS (3)
  - BURNING SENSATION [None]
  - INJECTION SITE EXTRAVASATION [None]
  - INJECTION SITE SWELLING [None]
